FAERS Safety Report 4762388-1 (Version None)
Quarter: 2005Q3

REPORT INFORMATION
  Report Type: 
  Country: None (occurrence: None)
  Receive Date: 20050907
  Receipt Date: 20050823
  Transmission Date: 20060218
  Serious: Yes (Other)
  Sender: FDA-Public Use
  Company Number: US-KINGPHARMUSA00001-K200501112

PATIENT
  Age: 41 Year
  Sex: Female
  Weight: 54 kg

DRUGS (6)
  1. LEVOXYL [Suspect]
     Indication: HYPOTHYROIDISM
     Dosage: 150 MCG, QD
     Route: 048
     Dates: start: 20050101, end: 20050101
  2. LEVOXYL [Suspect]
     Dosage: 137 MCG, QD
     Route: 048
     Dates: start: 20050101
  3. MULTIVITAMIN ^LAPPE^ [Concomitant]
     Route: 048
  4. CALCIUM GLUCONATE [Concomitant]
     Route: 048
     Dates: start: 20041001
  5. MAGNESIUM [Concomitant]
     Route: 048
  6. VITAMIN D [Concomitant]
     Dosage: UNK, PRN
     Route: 048

REACTIONS (5)
  - DECREASED APPETITE [None]
  - EYELID PTOSIS [None]
  - HYPERTHYROIDISM [None]
  - HYPOAESTHESIA [None]
  - PERIPHERAL COLDNESS [None]
